FAERS Safety Report 5018025-4 (Version None)
Quarter: 2006Q2

REPORT INFORMATION
  Report Type: 
  Country: None (occurrence: None)
  Receive Date: 20060530
  Receipt Date: 20060307
  Transmission Date: 20061013
  Serious: Yes (Disabling, Other)
  Sender: FDA-Public Use
  Company Number: 2005042507

PATIENT
  Age: 57 Year
  Sex: Female
  Weight: 60 kg

DRUGS (1)
  1. LYRICA [Suspect]
     Indication: NEURALGIA
     Dosage: 150 MG (75 MG, BID INTERVAL: EVERY DAY), ORAL
     Route: 048
     Dates: start: 20041112, end: 20041118

REACTIONS (2)
  - CONDITION AGGRAVATED [None]
  - PAIN [None]
